FAERS Safety Report 7554610-3 (Version None)
Quarter: 2011Q2

REPORT INFORMATION
  Report Type: 
  Country: None (occurrence: None)
  Receive Date: 20110617
  Receipt Date: 20110607
  Transmission Date: 20111010
  Serious: Yes (Life-Threatening, Hospitalization, Other)
  Sender: FDA-Public Use
  Company Number: US-ROCHE-782892

PATIENT
  Sex: Female

DRUGS (3)
  1. CISPLATIN [Suspect]
     Indication: OVARIAN EPITHELIAL CANCER
     Dosage: CYCLE 3; PHASE A.
     Route: 065
     Dates: start: 20100630
  2. PACLITAXEL [Suspect]
     Indication: OVARIAN EPITHELIAL CANCER
     Dosage: OVER 3 HRS ON DAY 1. CYCLE 3; PHASE A.
     Route: 042
     Dates: start: 20100630
  3. BEVACIZUMAB [Suspect]
     Indication: OVARIAN EPITHELIAL CANCER
     Dosage: LAST DOSE PRIOR TO SAE: 18 AUGUST 2010. CYCLE 3; PHASE A.
     Route: 065
     Dates: start: 20100630

REACTIONS (8)
  - FEMALE GENITAL TRACT FISTULA [None]
  - CONVULSION [None]
  - PELVIC INFECTION [None]
  - HYPERTENSION [None]
  - OPPORTUNISTIC INFECTION [None]
  - RESPIRATORY FAILURE [None]
  - THROMBOSIS [None]
  - COLONIC FISTULA [None]
